FAERS Safety Report 4298046-X (Version None)
Quarter: 2004Q1

REPORT INFORMATION
  Report Type: 
  Country: None (occurrence: None)
  Receive Date: 20040218
  Receipt Date: 20020306
  Transmission Date: 20041129
  Serious: Yes (Other)
  Sender: FDA-Public Use
  Company Number: US-BRISTOL-MYERS SQUIBB COMPANY-11764800

PATIENT
  Age: 34 Year
  Sex: Female

DRUGS (20)
  1. STADOL [Suspect]
     Indication: MIGRAINE
     Dosage: ROUTE OF ADMINISTRTION ALSO INTRAMUSCULAR.
     Route: 042
     Dates: start: 19970301
  2. STADOL [Suspect]
     Indication: TENSION HEADACHE
     Dosage: ROUTE OF ADMINISTRTION ALSO INTRAMUSCULAR.
     Route: 042
     Dates: start: 19970301
  3. STADOL [Suspect]
     Indication: MIGRAINE
     Route: 045
     Dates: start: 19990811
  4. STADOL [Suspect]
     Indication: TENSION HEADACHE
     Route: 045
     Dates: start: 19990811
  5. DEMEROL [Concomitant]
  6. PHENERGAN [Concomitant]
  7. XANAX [Concomitant]
  8. ROXICET [Concomitant]
  9. HYDROCODONE + ACETAMINOPHEN [Concomitant]
  10. TYLOX [Concomitant]
  11. ULTRAM [Concomitant]
  12. DARVOCET [Concomitant]
  13. VICODIN [Concomitant]
  14. PERCOCET [Concomitant]
  15. FIORINAL [Concomitant]
  16. TYLENOL W/ CODEINE NO. 3 [Concomitant]
  17. VALIUM [Concomitant]
  18. COMPAZINE [Concomitant]
  19. THORAZINE [Concomitant]
  20. TORADOL [Concomitant]

REACTIONS (3)
  - DRUG ABUSER [None]
  - DRUG EXPOSURE DURING PREGNANCY [None]
  - HEADACHE [None]
